FAERS Safety Report 5244861-5 (Version None)
Quarter: 2007Q1

REPORT INFORMATION
  Report Type: 
  Country: None (occurrence: None)
  Receive Date: 20070221
  Receipt Date: 20070221
  Transmission Date: 20070707
  Serious: Yes (Life-Threatening)
  Sender: FDA-Public Use
  Company Number: None

PATIENT
  Age: 42 Year
  Sex: Male
  Weight: 70.3075 kg

DRUGS (1)
  1. AMBIEN [Suspect]
     Dosage: 1 QD AT BEDTIME
     Dates: start: 20040101, end: 20050519

REACTIONS (6)
  - AMNESIA [None]
  - BANKRUPTCY [None]
  - LOSS OF EMPLOYMENT [None]
  - MEDICATION ERROR [None]
  - POISONING [None]
  - ROAD TRAFFIC ACCIDENT [None]
